FAERS Safety Report 18986915 (Version 3)
Quarter: 2024Q4

REPORT INFORMATION
  Report Type: Spontaneous
  Country: JP (occurrence: JP)
  Receive Date: 20210309
  Receipt Date: 20241107
  Transmission Date: 20250114
  Serious: Yes (Other)
  Sender: PFIZER
  Company Number: JP-MLMSERVICE-20210222-2737937-1

PATIENT
  Age: 50 Year
  Sex: Female

DRUGS (2)
  1. GEMCITABINE HYDROCHLORIDE [Suspect]
     Active Substance: GEMCITABINE HYDROCHLORIDE
     Indication: Uterine leiomyosarcoma
     Dosage: UNK, CYCLIC (DAY 1 AND 8)
  2. DOCETAXEL [Suspect]
     Active Substance: DOCETAXEL
     Indication: Uterine leiomyosarcoma
     Dosage: UNK, CYCLIC (DAY 8)

REACTIONS (2)
  - Palmar-plantar erythrodysaesthesia syndrome [Recovered/Resolved]
  - Dermatomyositis [Recovered/Resolved]
